FAERS Safety Report 7608913-4 (Version None)
Quarter: 2011Q3

REPORT INFORMATION
  Report Type: 
  Country: None (occurrence: None)
  Receive Date: 20110713
  Receipt Date: 20110713
  Transmission Date: 20111222
  Serious: Yes (Disabling)
  Sender: FDA-Public Use
  Company Number: None

PATIENT
  Age: 65 Year
  Sex: Female
  Weight: 56.6996 kg

DRUGS (2)
  1. TRICOR [Suspect]
     Indication: BLOOD CHOLESTEROL ABNORMAL
     Dosage: 145MG (1) 1 TIME DAILY
     Dates: start: 20070101, end: 20110501
  2. TRICOR [Suspect]
     Indication: BLOOD TRIGLYCERIDES ABNORMAL
     Dosage: 145MG (1) 1 TIME DAILY
     Dates: start: 20070101, end: 20110501

REACTIONS (2)
  - NERVE INJURY [None]
  - MUSCLE DISORDER [None]
